FAERS Safety Report 15005873 (Version 2)
Quarter: 2018Q2

REPORT INFORMATION
  Report Type: Spontaneous
  Country: JP (occurrence: JP)
  Receive Date: 20180613
  Receipt Date: 20180625
  Transmission Date: 20180711
  Serious: Yes (Other)
  Sender: FDA-Public Use
  Company Number: JP-TEVA-2018-JP-904181

PATIENT
  Age: 57 Year
  Sex: Male

DRUGS (2)
  1. CDDP [Suspect]
     Active Substance: CISPLATIN
     Indication: OESOPHAGEAL CARCINOMA
     Route: 065
  2. 5-FLUOROURACIL [Suspect]
     Active Substance: FLUOROURACIL
     Indication: OESOPHAGEAL CARCINOMA
     Route: 065

REACTIONS (3)
  - Oesophageal disorder [Recovered/Resolved]
  - Oesophageal squamous cell carcinoma [Recovered/Resolved]
  - Metaplasia [Recovered/Resolved]
